FAERS Safety Report 8575864-0 (Version None)
Quarter: 2012Q3

REPORT INFORMATION
  Report Type: 
  Country: None (occurrence: None)
  Receive Date: 20120807
  Receipt Date: 20120730
  Transmission Date: 20120928
  Serious: Yes (Other)
  Sender: FDA-Public Use
  Company Number: US-MPIJNJ-2012-05420

PATIENT

DRUGS (4)
  1. MYCOPHENOLATE MOFETIL [Concomitant]
     Indication: IMMUNOSUPPRESSION
  2. VELCADE [Suspect]
     Indication: TRANSPLANT REJECTION
     Dosage: 1.3 MG/M2, CYCLIC
  3. METHYLPREDNISOLONE [Suspect]
     Dosage: 50 MG, CYCLIC
     Route: 042
  4. METHYLPREDNISOLONE [Suspect]
     Indication: TRANSPLANT REJECTION
     Dosage: 100 MG, CYCLIC
     Route: 042

REACTIONS (1)
  - BK VIRUS INFECTION [None]
